FAERS Safety Report 8121721-3 (Version None)
Quarter: 2012Q1

REPORT INFORMATION
  Report Type: 
  Country: None (occurrence: None)
  Receive Date: 20120208
  Receipt Date: 20120130
  Transmission Date: 20120608
  Serious: Yes (Other)
  Sender: FDA-Public Use
  Company Number: US-PFIZER INC-2011291041

PATIENT
  Sex: Male

DRUGS (1)
  1. TORISEL [Suspect]
     Indication: RENAL CELL CARCINOMA
     Dosage: 25 MG, UNK
     Dates: start: 20110221, end: 20110411

REACTIONS (3)
  - DIABETES MELLITUS [None]
  - RENAL CELL CARCINOMA [None]
  - DISEASE PROGRESSION [None]
